FAERS Safety Report 11547580 (Version 1)
Quarter: 2015Q3

REPORT INFORMATION
  Report Type: Spontaneous
  Country: DE (occurrence: DE)
  Receive Date: 20150924
  Receipt Date: 20150924
  Transmission Date: 20151125
  Serious: Yes (Other)
  Sender: FDA-Public Use
  Company Number: DE-PFIZER INC-2015311184

PATIENT
  Age: 7 Day
  Sex: Female
  Weight: 3.85 kg

DRUGS (6)
  1. AMPICILLIN [Suspect]
     Active Substance: AMPICILLIN
     Indication: STREPTOCOCCUS TEST POSITIVE
     Dosage: UNK
     Route: 064
  2. FOLSAEURE [Concomitant]
     Active Substance: FOLIC ACID
     Indication: PROPHYLAXIS OF NEURAL TUBE DEFECT
     Dosage: UNK
     Route: 064
  3. CITALOPRAM [Suspect]
     Active Substance: CITALOPRAM HYDROBROMIDE
     Indication: DEPRESSION
     Dosage: 20 MG/D (10 MG TWICE PER DAY) / TILL WEEK 16: 20 MG/D; TILL WEEK 27 15 MG/D, THEN 10 MG/D
     Route: 064
     Dates: start: 20140902, end: 20150611
  4. AMPICILLIN [Concomitant]
     Active Substance: AMPICILLIN
     Indication: LISTERIOSIS
     Dosage: 1000 MG, 3X/DAY
     Route: 064
     Dates: start: 20150324, end: 20150405
  5. CEFUROXIM [Concomitant]
     Active Substance: CEFUROXIME
     Indication: URINARY TRACT INFECTION BACTERIAL
     Dosage: 500 MG, 2X/DAY
     Route: 064
     Dates: start: 20150513, end: 20150522
  6. SOBELIN [Suspect]
     Active Substance: CLINDAMYCIN HYDROCHLORIDE
     Indication: VAGINAL PH INCREASED
     Dosage: UNK
     Route: 064

REACTIONS (3)
  - Spinal muscular atrophy [Not Recovered/Not Resolved]
  - Maternal exposure during pregnancy [Unknown]
  - Congenital lymphoedema [Unknown]
